FAERS Safety Report 17739698 (Version 1)
Quarter: 2020Q2

REPORT INFORMATION
  Report Type: Spontaneous
  Country: GB (occurrence: GB)
  Receive Date: 20200504
  Receipt Date: 20200504
  Transmission Date: 20200714
  Serious: Yes (Other)
  Sender: FDA-Public Use
  Company Number: GB-HIKMA PHARMACEUTICALS USA INC.-GB-H14001-20-51231

PATIENT
  Age: 68 Year
  Sex: Female
  Weight: 39 kg

DRUGS (1)
  1. CO-AMOXICLAV [Suspect]
     Active Substance: AMOXICILLIN\CLAVULANATE POTASSIUM
     Indication: PRODUCT USED FOR UNKNOWN INDICATION
     Dosage: 500/125
     Route: 048
     Dates: start: 20200211, end: 20200212

REACTIONS (2)
  - Oral pain [Recovered/Resolved]
  - Swollen tongue [Recovered/Resolved]

NARRATIVE: CASE EVENT DATE: 20200211
